FAERS Safety Report 10057293 (Version 2)
Quarter: 2014Q2

REPORT INFORMATION
  Report Type: Report from Study
  Country: IT (occurrence: IT)
  Receive Date: 20140403
  Receipt Date: 20140522
  Transmission Date: 20141212
  Serious: Yes (Hospitalization)
  Sender: FDA-Public Use
  Company Number: IT-ONYX-2014-0679

PATIENT
  Age: 75 Year
  Sex: Female
  Weight: 51 kg

DRUGS (15)
  1. CARFILZOMIB [Suspect]
     Indication: PLASMA CELL MYELOMA
     Route: 042
     Dates: start: 20131217, end: 20131217
  2. CARFILZOMIB [Suspect]
     Route: 042
     Dates: start: 20131221
  3. FUROSEMIDE [Concomitant]
     Indication: PROPHYLAXIS
     Route: 048
     Dates: start: 20131217
  4. ESCITALOPRAM [Concomitant]
     Indication: PROPHYLAXIS
     Route: 048
     Dates: start: 2013
  5. LORAZEPAM [Concomitant]
     Indication: PROPHYLAXIS
     Route: 048
     Dates: start: 20131231
  6. CANDESARTAN/IDROCLOROTHIAZIDE [Concomitant]
     Indication: HYPERTENSION
     Route: 048
     Dates: start: 2013
  7. LEVOTIROXINA [Concomitant]
     Indication: HYPOTHYROIDISM
     Dates: start: 2013
  8. ACICLOVIR [Concomitant]
     Indication: ANTIVIRAL PROPHYLAXIS
     Route: 048
     Dates: start: 20140114
  9. MOXIFLOXACIN [Concomitant]
     Indication: PYREXIA
     Route: 048
     Dates: start: 20140325
  10. MOXIFLOXACIN [Concomitant]
     Indication: COUGH
  11. FLUIMUCIL AEROSOL [Concomitant]
     Indication: COUGH
     Dates: start: 20140325
  12. ARMOLIPID PLUS [Concomitant]
     Indication: PROPHYLAXIS
     Dates: start: 2013
  13. CHOLECALCIFEROL [Concomitant]
     Indication: VITAMIN SUPPLEMENTATION
     Route: 048
     Dates: start: 20140114
  14. DEXAMETHASONE [Concomitant]
     Indication: PLASMA CELL MYELOMA
     Route: 048
     Dates: start: 20131217
  15. CYCLOPHOSPHAMIDE [Concomitant]
     Indication: PLASMA CELL MYELOMA
     Route: 048
     Dates: start: 20131217

REACTIONS (2)
  - Infection [Recovered/Resolved]
  - Renal failure [Recovered/Resolved]
